FAERS Safety Report 9204187 (Version 2)
Quarter: 2015Q1

REPORT INFORMATION
  Report Type: Spontaneous
  Country: US (occurrence: US)
  Receive Date: 20130402
  Receipt Date: 20150120
  Transmission Date: 20150721
  Serious: Yes (Hospitalization)
  Sender: FDA-Public Use
  Company Number: US-BAYER-2013-038439

PATIENT
  Age: 35 Year
  Sex: Female

DRUGS (30)
  1. WELLBID-D [Concomitant]
     Dosage: 600MG/4MG
     Route: 048
     Dates: start: 20050531
  2. ALBUTEROL. [Concomitant]
     Active Substance: ALBUTEROL
     Dosage: UNK
     Route: 048
     Dates: start: 20050629
  3. PROVENTIL [Concomitant]
     Active Substance: ALBUTEROL
     Dosage: 6.7 G, UNK
  4. PANTOPRAZOLE [Concomitant]
     Active Substance: PANTOPRAZOLE SODIUM
     Dosage: 40 MG, UNK
     Route: 048
     Dates: start: 20090630
  5. PULMICORT TURBUHALER [Concomitant]
     Active Substance: BUDESONIDE
  6. SYMBICORT [Concomitant]
     Active Substance: BUDESONIDE\FORMOTEROL FUMARATE DIHYDRATE
     Dosage: 160/4.5MCG
     Dates: start: 20090403
  7. CLOTRIMAZOLE W/BETAMETHASONE DIPROPIONAT [Concomitant]
     Dosage: 45 G, UNK
     Route: 061
     Dates: start: 20090408
  8. METFORMIN [Concomitant]
     Active Substance: METFORMIN HYDROCHLORIDE
     Dosage: 500 MG, UNK
     Route: 048
     Dates: start: 20090408
  9. TOPROL XL [Concomitant]
     Active Substance: METOPROLOL SUCCINATE
     Dosage: 25 MG, UNK
     Route: 048
     Dates: start: 20050629
  10. SYNTHROID [Concomitant]
     Active Substance: LEVOTHYROXINE SODIUM
     Dosage: 0.175 MG, UNK
     Route: 048
     Dates: start: 20090415, end: 20090628
  11. DOXYCYCLINE HYCLATE. [Concomitant]
     Active Substance: DOXYCYCLINE HYCLATE
     Dosage: 100 MG, UNK
     Route: 048
     Dates: start: 20090622
  12. CLARINEX [Concomitant]
     Active Substance: DESLORATADINE
     Dosage: UNK
     Route: 048
     Dates: start: 20050629
  13. YAZ [Suspect]
     Active Substance: DROSPIRENONE\ETHINYL ESTRADIOL
  14. AMOXICILLIN. [Concomitant]
     Active Substance: AMOXICILLIN
     Dosage: 875 MG, UNK
     Route: 048
     Dates: start: 20050314
  15. SYNTHROID [Concomitant]
     Active Substance: LEVOTHYROXINE SODIUM
     Dosage: 88 ?G, UNK
     Route: 048
     Dates: start: 20050629
  16. LASIX [Concomitant]
     Active Substance: FUROSEMIDE
     Indication: PERIPHERAL SWELLING
     Dosage: 20 MG, UNK
     Route: 048
     Dates: start: 20050629
  17. AZITHROMYCIN [Concomitant]
     Active Substance: AZITHROMYCIN ANHYDROUS
     Dosage: UNK
     Dates: start: 20090529
  18. TRILIPIX [Concomitant]
     Active Substance: FENOFIBRIC ACID
     Dosage: 135 MG, UNK
     Route: 048
     Dates: start: 20090622
  19. RANITIDINE [Concomitant]
     Active Substance: RANITIDINE\RANITIDINE HYDROCHLORIDE
     Dosage: 150 MG, UNK
     Route: 048
     Dates: start: 20090630
  20. ZITHROMAX [Concomitant]
     Active Substance: AZITHROMYCIN DIHYDRATE
     Dosage: 250 MG, UNK
     Route: 048
     Dates: start: 20050531
  21. TOPROL XL [Concomitant]
     Active Substance: METOPROLOL SUCCINATE
     Dosage: 25 MG, UNK
     Route: 048
     Dates: start: 20050313, end: 20050313
  22. AZITHROMYCIN [Concomitant]
     Active Substance: AZITHROMYCIN ANHYDROUS
     Dosage: UNK
     Dates: start: 20090427
  23. YASMIN [Suspect]
     Active Substance: DROSPIRENONE\ETHINYL ESTRADIOL
  24. TRIAMTERENE AND HYDROCHLOROTHIAZIDE [Concomitant]
     Active Substance: HYDROCHLOROTHIAZIDE\TRIAMTERENE
     Dosage: 37.5 MG/ 25 MG
     Route: 048
     Dates: start: 20090601, end: 20090624
  25. PREDNISONE. [Concomitant]
     Active Substance: PREDNISONE
     Dosage: 20 MG, UNK
     Route: 048
     Dates: start: 20090408, end: 20090427
  26. AZITHROMYCIN [Concomitant]
     Active Substance: AZITHROMYCIN ANHYDROUS
     Dosage: 250 MG, UNK
     Route: 048
     Dates: start: 20090601
  27. BYETTA [Concomitant]
     Active Substance: EXENATIDE
     Dosage: 10 ?G, UNK
     Route: 058
     Dates: start: 20090405, end: 20090614
  28. FUROSEMIDE. [Concomitant]
     Active Substance: FUROSEMIDE
     Dosage: 20 MG, UNK
     Route: 048
  29. METHYLPREDNISOLONE. [Concomitant]
     Active Substance: METHYLPREDNISOLONE
     Dosage: 4 MG, UNK
     Route: 048
     Dates: start: 20050531
  30. CLARINEX [Concomitant]
     Active Substance: DESLORATADINE
     Dosage: 5 MG, UNK
     Route: 048
     Dates: start: 20090403, end: 20090614

REACTIONS (5)
  - Pain [Recovering/Resolving]
  - Injury [Recovering/Resolving]
  - Pain [None]
  - Pulmonary embolism [Recovering/Resolving]
  - Deep vein thrombosis [Recovered/Resolved]

NARRATIVE: CASE EVENT DATE: 20050629
